FAERS Safety Report 6086098-6 (Version None)
Quarter: 2009Q1

REPORT INFORMATION
  Report Type: 
  Country: None (occurrence: None)
  Receive Date: 20090217
  Receipt Date: 20090217
  Transmission Date: 20090719
  Serious: Yes (Other)
  Sender: FDA-Public Use
  Company Number: None

PATIENT
  Age: 71 Year
  Sex: Female
  Weight: 52.6173 kg

DRUGS (2)
  1. MIRTAZAPINE [Suspect]
     Indication: SOMNOLENCE
     Dosage: 30MG QHS PO
     Route: 048
     Dates: start: 20081022, end: 20090210
  2. SERTRALINE [Suspect]
     Indication: DEPRESSION
     Dosage: 150MG DAILY PO, }7 MONTHS; ON PTA HOSPICE
     Route: 048

REACTIONS (1)
  - SEROTONIN SYNDROME [None]
